FAERS Safety Report 18780168 (Version 1)
Quarter: 2021Q1

REPORT INFORMATION
  Report Type: Spontaneous
  Country: AU (occurrence: AU)
  Receive Date: 20210125
  Receipt Date: 20210125
  Transmission Date: 20210419
  Serious: Yes (Hospitalization, Other)
  Sender: FDA-Public Use
  Company Number: AU-SA-2021SA018164

PATIENT
  Age: 5 Year
  Sex: Female

DRUGS (22)
  1. SULFAMETHOXAZOLE/TRIMETHOPRIM [Suspect]
     Active Substance: SULFAMETHOXAZOLE\TRIMETHOPRIM
  2. NIFEDIPINE. [Concomitant]
     Active Substance: NIFEDIPINE
  3. ANTI?THYMOCYTE GLOBULIN (RABBIT) NOS [Suspect]
     Active Substance: LAPINE T-LYMPHOCYTE IMMUNE GLOBULIN
     Indication: BONE MARROW CONDITIONING REGIMEN
     Dosage: 30 MG/KG, QD; ON DAYS ?8, ?6 AND ?4 (TOTAL DOSE = 90 MG/KG)
  4. ITRACONAZOLE. [Suspect]
     Active Substance: ITRACONAZOLE
  5. CEPHALOTHIN [CEFALOTIN] [Concomitant]
     Active Substance: CEPHALOTHIN
  6. PROBENECID. [Concomitant]
     Active Substance: PROBENECID
  7. PREDNISOLONE. [Suspect]
     Active Substance: PREDNISOLONE
     Indication: GRAFT VERSUS HOST DISEASE
     Dosage: 2 MG/KG
  8. FUROSEMIDE. [Suspect]
     Active Substance: FUROSEMIDE
  9. PARACETAMOL [Suspect]
     Active Substance: ACETAMINOPHEN
  10. METRONIDAZOLE. [Suspect]
     Active Substance: METRONIDAZOLE
  11. CYCLOSPORIN [Suspect]
     Active Substance: CYCLOSPORINE
     Indication: PROPHYLAXIS AGAINST GRAFT VERSUS HOST DISEASE
  12. OMEPRAZOLE. [Suspect]
     Active Substance: OMEPRAZOLE
  13. BUSULPHAN [Suspect]
     Active Substance: BUSULFAN
     Indication: BONE MARROW CONDITIONING REGIMEN
     Dosage: 150 MG/M2, QD, ON DAYS ?7 TO ?4 (TOTAL DOSE = 600 MG/M2)
     Route: 048
  14. BUSULPHAN [Suspect]
     Active Substance: BUSULFAN
     Indication: ACUTE MYELOID LEUKAEMIA
  15. ANTI?THYMOCYTE GLOBULIN (RABBIT) NOS [Suspect]
     Active Substance: LAPINE T-LYMPHOCYTE IMMUNE GLOBULIN
     Indication: ACUTE MYELOID LEUKAEMIA
  16. BUSCOPAN [Concomitant]
     Active Substance: BUTYLSCOPOLAMINE BROMIDE
  17. TICARCILLIN DISODIUM AND POTASSIUM CLAVULANATE [Concomitant]
  18. MELPHALAN. [Suspect]
     Active Substance: MELPHALAN
     Indication: BONE MARROW CONDITIONING REGIMEN
     Dosage: 70 MG/M2, QD; ON DAYS ?3  TO ?1  (TOTAL DOSE = 210 MG/M2)
     Route: 042
  19. MELPHALAN. [Suspect]
     Active Substance: MELPHALAN
     Indication: ACUTE MYELOID LEUKAEMIA
  20. ONDANSETRON [Suspect]
     Active Substance: ONDANSETRON
  21. GENTAMICIN. [Concomitant]
     Active Substance: GENTAMICIN
  22. METOCLOPRAMIDE. [Concomitant]
     Active Substance: METOCLOPRAMIDE

REACTIONS (9)
  - Anaemia [Recovered/Resolved]
  - Adenovirus infection [Recovered/Resolved]
  - Abdominal distension [Recovered/Resolved]
  - Abdominal pain [Recovered/Resolved]
  - Pancreatitis haemorrhagic [Recovered/Resolved]
  - Hepatomegaly [Recovered/Resolved]
  - Oedematous pancreatitis [Recovered/Resolved]
  - Diarrhoea [Recovered/Resolved]
  - Pancreatitis acute [Recovered/Resolved]
